FAERS Safety Report 22056034 (Version 2)
Quarter: 2023Q2

REPORT INFORMATION
  Report Type: Spontaneous
  Country: US (occurrence: US)
  Receive Date: 20230302
  Receipt Date: 20230505
  Transmission Date: 20230721
  Serious: No
  Sender: FDA-Public Use
  Company Number: US-BAUSCH-BL-2023-003260

PATIENT
  Sex: Female

DRUGS (2)
  1. ALTRENO [Suspect]
     Active Substance: TRETINOIN
     Indication: Product used for unknown indication
     Route: 065
  2. ALTRENO [Suspect]
     Active Substance: TRETINOIN

REACTIONS (5)
  - Nausea [Unknown]
  - Heart rate increased [Unknown]
  - Feeling abnormal [Unknown]
  - Product physical consistency issue [Unknown]
  - Product quality issue [Unknown]
